FAERS Safety Report 6876278-1 (Version None)
Quarter: 2010Q3

REPORT INFORMATION
  Report Type: 
  Country: None (occurrence: None)
  Receive Date: 20100727
  Receipt Date: 20100721
  Transmission Date: 20110219
  Serious: Yes (Hospitalization, Disabling)
  Sender: FDA-Public Use
  Company Number: B0664125A

PATIENT
  Sex: Female
  Weight: 50 kg

DRUGS (5)
  1. VALTREX [Suspect]
     Indication: HERPES ZOSTER
     Dosage: 3000MG PER DAY
     Route: 048
     Dates: start: 20100629, end: 20100701
  2. MEVALOTIN [Concomitant]
     Route: 048
  3. MAINTATE [Concomitant]
     Route: 048
  4. ZYLORIC [Concomitant]
     Route: 048
  5. EVISTA [Concomitant]
     Route: 048

REACTIONS (4)
  - ALTERED STATE OF CONSCIOUSNESS [None]
  - BLOOD CREATININE INCREASED [None]
  - BLOOD UREA INCREASED [None]
  - RENAL DISORDER [None]
